FAERS Safety Report 20109297 (Version 4)
Quarter: 2022Q1

REPORT INFORMATION
  Report Type: Report from Study
  Country: US (occurrence: US)
  Receive Date: 20211124
  Receipt Date: 20220301
  Transmission Date: 20220423
  Serious: Yes (Other)
  Sender: FDA-Public Use
  Company Number: NVSC2021US268257

PATIENT
  Sex: Male
  Weight: 131.06 kg

DRUGS (3)
  1. TREPROSTINIL [Suspect]
     Active Substance: TREPROSTINIL
     Indication: Pulmonary arterial hypertension
     Dosage: 79 NG/KG/MIN, CONT
     Route: 058
     Dates: start: 20211006
  2. TREPROSTINIL [Suspect]
     Active Substance: TREPROSTINIL
     Dosage: 79 NG/KG/MIN, CONT
     Route: 058
  3. AMLODIPINE [Concomitant]
     Active Substance: AMLODIPINE BESYLATE
     Indication: Product used for unknown indication
     Dosage: UNK
     Route: 065

REACTIONS (2)
  - Skin cancer [Unknown]
  - Skin injury [Unknown]
